FAERS Safety Report 16383967 (Version 1)
Quarter: 2019Q2

REPORT INFORMATION
  Report Type: Spontaneous
  Country: US (occurrence: US)
  Receive Date: 20190429
  Receipt Date: 20190429
  Transmission Date: 20190711
  Serious: No
  Sender: FDA-Public Use
  Company Number: None

PATIENT
  Age: 72 Year
  Sex: Female

DRUGS (1)
  1. IBRANCE [Suspect]
     Active Substance: PALBOCICLIB
     Route: 048
     Dates: start: 201903

REACTIONS (4)
  - Pain in extremity [None]
  - Neuropathy peripheral [None]
  - Arthritis [None]
  - Myalgia [None]

NARRATIVE: CASE EVENT DATE: 20190429
